FAERS Safety Report 7685767-1 (Version None)
Quarter: 2011Q3

REPORT INFORMATION
  Report Type: 
  Country: None (occurrence: None)
  Receive Date: 20110815
  Receipt Date: 20110815
  Transmission Date: 20111222
  Serious: Yes (Hospitalization)
  Sender: FDA-Public Use
  Company Number: None

PATIENT
  Sex: Female
  Weight: 82.3 kg

DRUGS (12)
  1. CLONIDINE [Concomitant]
     Route: 048
  2. CARDIZEM [Concomitant]
     Route: 048
  3. NEXIUM [Concomitant]
     Route: 048
  4. FOLIC ACID [Concomitant]
     Route: 048
  5. LEVOTHYROXINE SODIUM [Concomitant]
     Route: 048
  6. LASIX [Concomitant]
     Route: 048
  7. PRADAXA [Concomitant]
     Route: 048
  8. SIMAVASTATIN [Concomitant]
     Route: 048
  9. METOPROLOL TARTRATE [Concomitant]
     Route: 048
  10. ZETIA [Concomitant]
     Route: 048
  11. PRADAXA [Suspect]
     Indication: ATRIAL FIBRILLATION
     Dosage: 150 MG
     Route: 048
  12. LASIX [Concomitant]
     Route: 048

REACTIONS (3)
  - EMBOLIC STROKE [None]
  - GASTROINTESTINAL HAEMORRHAGE [None]
  - ASTHENIA [None]
